FAERS Safety Report 7889124-4 (Version None)
Quarter: 2011Q4

REPORT INFORMATION
  Report Type: 
  Country: None (occurrence: None)
  Receive Date: 20111103
  Receipt Date: 20111027
  Transmission Date: 20120403
  Serious: Yes (Hospitalization, Other)
  Sender: FDA-Public Use
  Company Number: US-BRISTOL-MYERS SQUIBB COMPANY-16077679

PATIENT
  Age: 53 Year
  Sex: Female
  Weight: 91 kg

DRUGS (9)
  1. LISINOPRIL [Concomitant]
     Dosage: TABLET
     Route: 048
  2. LORAZEPAM [Concomitant]
     Dosage: TABLET; EVERY 4-6 HOURS
     Route: 048
  3. PROMETHAZINE [Concomitant]
     Dosage: EVERY 4 HOURS
     Route: 054
  4. ALEVE [Concomitant]
     Dosage: AS NEEDED;TABLET
     Route: 048
  5. ATIVAN [Concomitant]
     Dosage: TABLET
     Route: 048
  6. CITALOPRAM HYDROBROMIDE [Concomitant]
     Dosage: TABLET
     Route: 048
  7. LEVOTHROID [Concomitant]
     Dosage: EVERY MORNING
     Route: 048
  8. SPRYCEL [Suspect]
     Indication: CHRONIC MYELOID LEUKAEMIA
     Dosage: RESTARTED 4 DAYS LATER;TABLET
     Route: 048
     Dates: start: 20110616
  9. TRAZODONE HCL [Concomitant]
     Route: 048

REACTIONS (11)
  - CARDIAC FAILURE CONGESTIVE [None]
  - PARAESTHESIA [None]
  - FALL [None]
  - DYSPNOEA [None]
  - CHEST DISCOMFORT [None]
  - VOMITING [None]
  - DIZZINESS [None]
  - DIARRHOEA [None]
  - PLEURAL EFFUSION [None]
  - HYPOTENSION [None]
  - DECREASED APPETITE [None]
